FAERS Safety Report 9640712 (Version 1)
Quarter: 2013Q4

REPORT INFORMATION
  Report Type: Report from Study
  Country: US (occurrence: US)
  Receive Date: 20131023
  Receipt Date: 20131023
  Transmission Date: 20140711
  Serious: No
  Sender: FDA-Public Use
  Company Number: US-ABBVIE-12P-163-1022373-00

PATIENT
  Age: 38 Year
  Sex: Female

DRUGS (3)
  1. LUPRON DEPOT [Suspect]
     Indication: UTERINE LEIOMYOMA
     Dosage: 1ST INJECTIONLOT # AND EXPIRATION UNAVAILABLE FROM PHARMACY SOLUTIONS.
     Dates: start: 201208, end: 201208
  2. LUPRON DEPOT [Suspect]
     Dosage: 2ND INJECTION
     Dates: start: 201211
  3. IBUPROFEN [Concomitant]
     Indication: PRODUCT USED FOR UNKNOWN INDICATION

REACTIONS (2)
  - Burning sensation [Recovered/Resolved]
  - Burning sensation [Recovered/Resolved]
